FAERS Safety Report 4322372-9 (Version None)
Quarter: 2004Q1

REPORT INFORMATION
  Report Type: 
  Country: None (occurrence: None)
  Receive Date: 20040319
  Receipt Date: 20040203
  Transmission Date: 20041129
  Serious: Yes (Hospitalization)
  Sender: FDA-Public Use
  Company Number: F01200400200

PATIENT
  Age: 67 Year
  Sex: Female

DRUGS (3)
  1. FONDAPARINUX SODIUM - SOLUTION - UNIT DOSE : UNKNOWN [Suspect]
     Indication: BONE OPERATION
     Dosage: 2.5 MG SUBCUTANEOUS
     Route: 058
     Dates: start: 20040122
  2. ACETAMINOPHEN [Concomitant]
  3. TRAMADOL HCL [Concomitant]

REACTIONS (3)
  - HAEMATURIA [None]
  - HAEMOGLOBIN DECREASED [None]
  - JAUNDICE [None]
